FAERS Safety Report 14351053 (Version 2)
Quarter: 2019Q3

REPORT INFORMATION
  Report Type: Spontaneous
  Country: FR (occurrence: FR)
  Receive Date: 20180104
  Receipt Date: 20190910
  Transmission Date: 20191004
  Serious: Yes (Hospitalization, Other)
  Sender: FDA-Public Use
  Company Number: FR-SA-2017SA269290

PATIENT
  Age: 67 Year
  Sex: Female
  Weight: 38.5 kg

DRUGS (6)
  1. MULTICROM [Concomitant]
     Active Substance: CROMOLYN SODIUM
     Dosage: UNK UNK,UNK
     Route: 065
  2. XYZALL [Concomitant]
     Active Substance: LEVOCETIRIZINE DIHYDROCHLORIDE
     Dosage: UNK UNK,UNK
     Route: 065
  3. VERATRAN [Concomitant]
     Active Substance: CLOTIAZEPAM
     Dosage: UNK UNK,UNK
     Route: 065
  4. SOTALEX [Concomitant]
     Active Substance: SOTALOL
     Dosage: UNK UNK,UNK
     Route: 065
  5. RIFATER [Suspect]
     Active Substance: ISONIAZID\PYRAZINAMIDE\RIFAMPIN
     Indication: ATYPICAL MYCOBACTERIAL INFECTION
     Dosage: 4 DF,UNK
     Route: 048
     Dates: start: 20171113, end: 20171130
  6. AVAMYS [Concomitant]
     Active Substance: FLUTICASONE FUROATE
     Dosage: UNK UNK,UNK
     Route: 065

REACTIONS (2)
  - Weight decreased [Recovering/Resolving]
  - Hepatitis [Recovering/Resolving]

NARRATIVE: CASE EVENT DATE: 20171130
